FAERS Safety Report 11925215 (Version 1)
Quarter: 2016Q1

REPORT INFORMATION
  Report Type: Spontaneous
  Country: JP (occurrence: JP)
  Receive Date: 20160118
  Receipt Date: 20160118
  Transmission Date: 20160526
  Serious: Yes (Other)
  Sender: FDA-Public Use
  Company Number: JP-MYLANLABS-2016M1001883

PATIENT

DRUGS (2)
  1. FLUOROURACIL. [Suspect]
     Active Substance: FLUOROURACIL
     Indication: ANAL SQUAMOUS CELL CARCINOMA
     Dosage: 800 MG/M2, DAYS 1 TO 5, DAYS 29 TO 33
     Route: 065
  2. CISPLATIN. [Suspect]
     Active Substance: CISPLATIN
     Indication: ANAL SQUAMOUS CELL CARCINOMA
     Dosage: 80 MG/M2, DAYS 1 AND 29
     Route: 065

REACTIONS (4)
  - Neutropenia [Unknown]
  - Diarrhoea [Unknown]
  - Stomatitis [Unknown]
  - Decreased appetite [Unknown]
